FAERS Safety Report 8785020 (Version 4)
Quarter: 2014Q3

REPORT INFORMATION
  Report Type: Spontaneous
  Country: US (occurrence: US)
  Receive Date: 20120914
  Receipt Date: 20140815
  Transmission Date: 20150326
  Serious: Yes (Life-Threatening, Hospitalization, Other)
  Sender: FDA-Public Use
  Company Number: US-009507513-2011SP037379

PATIENT
  Sex: Female
  Weight: 74.84 kg

DRUGS (2)
  1. NUVARING [Suspect]
     Active Substance: ETHINYL ESTRADIOL\ETONOGESTREL
     Dosage: UNK
     Dates: start: 201101, end: 20110406
  2. NUVARING [Suspect]
     Active Substance: ETHINYL ESTRADIOL\ETONOGESTREL
     Indication: CONTRACEPTION
     Dosage: UNK
     Route: 067
     Dates: start: 200502, end: 200601

REACTIONS (20)
  - Vena cava embolism [Recovered/Resolved]
  - Hypertension [Unknown]
  - Cystic fibrosis [Unknown]
  - Tonsillitis [Unknown]
  - Thrombolysis [Unknown]
  - Emotional disorder [Unknown]
  - Cognitive disorder [Unknown]
  - Pulmonary embolism [Unknown]
  - Iliac vein occlusion [Unknown]
  - Peritonsillar abscess [Unknown]
  - Chest pain [Unknown]
  - Hypokalaemia [Unknown]
  - Nephrolithiasis [Unknown]
  - Polycystic ovaries [Unknown]
  - Renal stone removal [Unknown]
  - Ureteral stent insertion [Unknown]
  - Urinary tract infection [Unknown]
  - Mental disorder [Unknown]
  - Headache [Not Recovered/Not Resolved]
  - Migraine [Unknown]

NARRATIVE: CASE EVENT DATE: 2010
